FAERS Safety Report 9748370 (Version 1)
Quarter: 2013Q4

REPORT INFORMATION
  Report Type: Spontaneous
  Country: NL (occurrence: None)
  Receive Date: 20131206
  Receipt Date: 20131206
  Transmission Date: 20140711
  Serious: Yes (Life-Threatening, Hospitalization)
  Sender: FDA-Public Use
  Company Number: AUR-APL-2013-10043

PATIENT
  Sex: Female

DRUGS (1)
  1. GABAPENTIN (GABAPENTIN) [Suspect]
     Indication: NEUROPATHY PERIPHERAL
     Dosage: 1-2 DD (400 MG), UNKNOWN

REACTIONS (2)
  - Hypoglycaemia [None]
  - Loss of consciousness [None]
